FAERS Safety Report 5244391-0 (Version None)
Quarter: 2007Q1

REPORT INFORMATION
  Report Type: 
  Country: None (occurrence: None)
  Receive Date: 20070222
  Receipt Date: 20070213
  Transmission Date: 20070707
  Serious: Yes (Hospitalization)
  Sender: FDA-Public Use
  Company Number: AU-BRISTOL-MYERS SQUIBB COMPANY-13625843

PATIENT
  Age: 72 Year
  Sex: Male

DRUGS (10)
  1. DASATINIB [Suspect]
     Indication: LEUKAEMIA
     Route: 048
     Dates: start: 20051018, end: 20061018
  2. ALLOPURINOL SODIUM [Concomitant]
     Dates: start: 20040101
  3. METOPROLOL SUCCINATE [Concomitant]
     Dates: start: 19900101
  4. RANITIDINE [Concomitant]
     Dates: start: 20061015
  5. PRAZOSIN HCL [Concomitant]
     Dates: start: 19850101
  6. TRITACE [Concomitant]
     Dates: start: 19900101
  7. MAXOLON [Concomitant]
     Dates: start: 20051107
  8. GLUCOSAMINE [Concomitant]
     Dates: start: 20060601
  9. VENTOLIN [Concomitant]
     Dates: start: 20060824
  10. PULMICORT [Concomitant]
     Dates: start: 20060825

REACTIONS (1)
  - SUBDURAL HAEMATOMA [None]
